FAERS Safety Report 11079982 (Version 1)
Quarter: 2015Q2

REPORT INFORMATION
  Report Type: Spontaneous
  Country: CH (occurrence: CH)
  Receive Date: 20150430
  Receipt Date: 20150430
  Transmission Date: 20150821
  Serious: Yes (Other)
  Sender: FDA-Public Use
  Company Number: CH-ABBVIE-12P-151-0953228-00

PATIENT
  Age: 81 Year
  Sex: Male

DRUGS (4)
  1. LEUPRORELIN DEPOT 6 MONATE [Interacting]
     Active Substance: LEUPROLIDE ACETATE
     Indication: PROSTATE CANCER
     Route: 065
     Dates: start: 20120206
  2. LUCRIN [Suspect]
     Active Substance: LEUPROLIDE ACETATE
     Indication: PROSTATE CANCER
     Route: 058
     Dates: start: 20120216, end: 20120216
  3. UNKNOWN ANTICOAGULANT [Concomitant]
     Active Substance: UNSPECIFIED INGREDIENT
     Indication: PRODUCT USED FOR UNKNOWN INDICATION
  4. TORASEM [Interacting]
     Active Substance: TORSEMIDE
     Indication: DIURETIC THERAPY
     Route: 065

REACTIONS (4)
  - Hypersensitivity [Recovered/Resolved]
  - Scrotal oedema [Unknown]
  - Drug interaction [Unknown]
  - Scrotal oedema [Recovered/Resolved]

NARRATIVE: CASE EVENT DATE: 201202
